FAERS Safety Report 14179219 (Version 1)
Quarter: 2017Q4

REPORT INFORMATION
  Report Type: Spontaneous
  Country: GB (occurrence: GB)
  Receive Date: 20171110
  Receipt Date: 20171110
  Transmission Date: 20180321
  Serious: Yes (Other)
  Sender: FDA-Public Use
  Company Number: GB-TEVA-792134ACC

PATIENT
  Age: 40 Year
  Sex: Female

DRUGS (1)
  1. BISOPROLOL [Suspect]
     Active Substance: BISOPROLOL
     Indication: HYPERTENSION
     Dosage: 1.25 MILLIGRAM DAILY;
     Route: 048
     Dates: start: 201705

REACTIONS (2)
  - Flushing [Recovered/Resolved]
  - Paradoxical drug reaction [Unknown]

NARRATIVE: CASE EVENT DATE: 201705
